FAERS Safety Report 8192336-6 (Version None)
Quarter: 2012Q1

REPORT INFORMATION
  Report Type: 
  Country: None (occurrence: None)
  Receive Date: 20120307
  Receipt Date: 20120227
  Transmission Date: 20120608
  Serious: Yes (Hospitalization)
  Sender: FDA-Public Use
  Company Number: US-ASTRAZENECA-2011SE54213

PATIENT
  Age: 37 Year
  Sex: Female
  Weight: 109.8 kg

DRUGS (22)
  1. SEROQUEL [Suspect]
     Route: 048
  2. SEROQUEL [Suspect]
     Route: 048
  3. SEROQUEL [Suspect]
     Route: 048
  4. SEROQUEL [Suspect]
     Route: 048
  5. SEROQUEL [Suspect]
     Route: 048
  6. CENTROID [Concomitant]
     Indication: THYROID DISORDER
  7. PRILOSEC [Concomitant]
     Route: 048
  8. SEROQUEL [Suspect]
     Route: 048
  9. SEROQUEL [Suspect]
     Route: 048
  10. SEROQUEL [Suspect]
     Route: 048
  11. SEROQUEL [Suspect]
     Indication: BIPOLAR DISORDER
     Route: 048
     Dates: start: 20100311
  12. SEROQUEL [Suspect]
     Route: 048
  13. GABAPENEM [Concomitant]
  14. CENTROID [Concomitant]
  15. ZEANAFLEX [Concomitant]
  16. SEROQUEL [Suspect]
     Indication: INSOMNIA
     Route: 048
     Dates: start: 20100311
  17. GABAPENEM [Concomitant]
     Indication: PAIN
  18. SEROQUEL [Suspect]
     Indication: SLEEP DISORDER
     Route: 048
     Dates: start: 20100311
  19. SEROQUEL [Suspect]
     Route: 048
  20. LAMIPAL [Concomitant]
     Indication: BIPOLAR I DISORDER
     Dosage: 200 QHS
  21. SEROQUEL [Suspect]
     Route: 048
  22. SEROQUEL [Suspect]
     Route: 048

REACTIONS (7)
  - GASTROINTESTINAL HAEMORRHAGE [None]
  - OFF LABEL USE [None]
  - WITHDRAWAL SYNDROME [None]
  - LETHARGY [None]
  - DUODENAL ULCER [None]
  - DYSPHONIA [None]
  - DRUG DOSE OMISSION [None]
